FAERS Safety Report 16947354 (Version 1)
Quarter: 2019Q4

REPORT INFORMATION
  Report Type: Spontaneous
  Country: DE (occurrence: DE)
  Receive Date: 20191022
  Receipt Date: 20191022
  Transmission Date: 20200122
  Serious: Yes (Other)
  Sender: FDA-Public Use
  Company Number: DE-SHIRE-DE201935655

PATIENT

DRUGS (3)
  1. HUMIRA [Suspect]
     Active Substance: ADALIMUMAB
     Indication: CROHN^S DISEASE
     Dosage: 40 MILLIGRAM
     Route: 058
     Dates: start: 20110609
  2. RESOLOR [Suspect]
     Active Substance: PRUCALOPRIDE SUCCINATE
     Indication: DYSPEPSIA
     Route: 065
  3. RESOLOR [Suspect]
     Active Substance: PRUCALOPRIDE SUCCINATE
     Indication: VOMITING

REACTIONS (6)
  - Bursitis infective [Recovered/Resolved]
  - Vomiting [Recovered/Resolved]
  - Stress [Unknown]
  - Joint swelling [Recovered/Resolved]
  - Electrolyte imbalance [Unknown]
  - Dyspepsia [Unknown]

NARRATIVE: CASE EVENT DATE: 201907
